FAERS Safety Report 7617925-6 (Version None)
Quarter: 2011Q3

REPORT INFORMATION
  Report Type: 
  Country: None (occurrence: None)
  Receive Date: 20110718
  Receipt Date: 20110704
  Transmission Date: 20111222
  Serious: Yes (Other)
  Sender: FDA-Public Use
  Company Number: PHHY2010MX30875

PATIENT
  Age: 80 Year
  Sex: Female
  Weight: 70 kg

DRUGS (2)
  1. LEVOTIROXINE [Concomitant]
  2. DIOVAN HCT [Suspect]
     Indication: HYPERTENSION
     Dosage: 160 MG VALSARTAN AND 25 MG HYDROCHLOROTHIAZIDE, 1 TABLET PER DAY
     Route: 048
     Dates: start: 20100430

REACTIONS (3)
  - BLOOD SODIUM DECREASED [None]
  - THYROID DISORDER [None]
  - BLOOD PRESSURE INCREASED [None]
